FAERS Safety Report 4971680-7 (Version None)
Quarter: 2006Q2

REPORT INFORMATION
  Report Type: 
  Country: None (occurrence: None)
  Receive Date: 20060413
  Receipt Date: 20060324
  Transmission Date: 20061013
  Serious: Yes (Death)
  Sender: FDA-Public Use
  Company Number: PHBS2006JP04480

PATIENT
  Age: 50 Year
  Sex: Male
  Weight: 47.8 kg

DRUGS (5)
  1. GLEEVEC [Suspect]
     Indication: GASTROINTESTINAL STROMAL TUMOUR
     Dosage: 800 MG, QD
     Route: 048
     Dates: start: 20060101, end: 20060201
  2. LAC B [Concomitant]
     Indication: DIARRHOEA
     Dates: start: 20040213, end: 20040928
  3. GLYCYRON [Concomitant]
     Indication: HEPATIC FUNCTION ABNORMAL
     Dates: start: 20040308, end: 20040928
  4. GLEEVEC [Suspect]
     Dosage: 400 MG, QD
     Route: 048
     Dates: start: 20040123, end: 20040808
  5. GLEEVEC [Suspect]
     Dosage: 400 MG, QD
     Route: 048
     Dates: start: 20041220, end: 20050530

REACTIONS (3)
  - DRUG RESISTANCE [None]
  - MALIGNANT NEOPLASM PROGRESSION [None]
  - SUDDEN DEATH [None]
